FAERS Safety Report 7190488-8 (Version None)
Quarter: 2010Q4

REPORT INFORMATION
  Report Type: 
  Country: None (occurrence: None)
  Receive Date: 20101223
  Receipt Date: 20101214
  Transmission Date: 20110411
  Serious: Yes (Hospitalization, Other)
  Sender: FDA-Public Use
  Company Number: JP-JNJFOC-20101205158

PATIENT
  Sex: Male
  Weight: 63 kg

DRUGS (7)
  1. REMICADE [Suspect]
     Indication: PUSTULAR PSORIASIS
     Route: 042
  2. REMICADE [Suspect]
     Route: 042
  3. REMICADE [Suspect]
     Route: 042
  4. HUMIRA [Suspect]
     Indication: PUSTULAR PSORIASIS
     Route: 058
  5. HUMIRA [Suspect]
     Route: 058
  6. HUMIRA [Suspect]
     Route: 058
  7. ISCOTIN [Concomitant]
     Indication: ANTIBIOTIC PROPHYLAXIS
     Route: 048

REACTIONS (4)
  - DRUG INEFFECTIVE [None]
  - PLEURAL EFFUSION [None]
  - PLEURISY [None]
  - PNEUMONIA [None]
